FAERS Safety Report 17588413 (Version 10)
Quarter: 2020Q4

REPORT INFORMATION
  Report Type: Report from Study
  Country: US (occurrence: US)
  Receive Date: 20200326
  Receipt Date: 20201216
  Transmission Date: 20210113
  Serious: Yes (Other)
  Sender: FDA-Public Use
  Company Number: US-INCYTE CORPORATION-2020IN001842

PATIENT

DRUGS (9)
  1. JAKAFI [Suspect]
     Active Substance: RUXOLITINIB
     Indication: JANUS KINASE 2 MUTATION
     Dosage: 20 MILLIGRAM, BID
     Route: 048
     Dates: start: 202001
  2. JAKAFI [Suspect]
     Active Substance: RUXOLITINIB
     Dosage: 15 MILLIGRAM, BID
     Route: 048
     Dates: start: 20200108
  3. ALLOPURINOL. [Concomitant]
     Active Substance: ALLOPURINOL
     Indication: NEPHROLITHIASIS
     Route: 065
  4. JAKAFI [Suspect]
     Active Substance: RUXOLITINIB
     Dosage: 15 MILLIGRAM, BID
     Route: 048
     Dates: start: 202002
  5. ASA [Concomitant]
     Active Substance: ASPIRIN
     Indication: PRODUCT USED FOR UNKNOWN INDICATION
     Route: 065
  6. JAKAFI [Suspect]
     Active Substance: RUXOLITINIB
     Indication: MYELOPROLIFERATIVE NEOPLASM
     Dosage: 15 MILLIGRAM, QD
     Route: 048
     Dates: start: 20200131
  7. JAKAFI [Suspect]
     Active Substance: RUXOLITINIB
     Dosage: UNK
     Route: 065
  8. JAKAFI [Suspect]
     Active Substance: RUXOLITINIB
     Dosage: 15 MILLIGRAM, QD
     Route: 048
     Dates: start: 20200202
  9. JAKAFI [Suspect]
     Active Substance: RUXOLITINIB
     Dosage: 15 MILLIGRAM, BID
     Route: 065
     Dates: start: 20200108

REACTIONS (20)
  - Joint swelling [Unknown]
  - Headache [Unknown]
  - Contusion [Unknown]
  - Nephrolithiasis [Unknown]
  - Hepatosplenomegaly [Recovering/Resolving]
  - Hunger [Unknown]
  - Hypocalcaemia [Unknown]
  - Fall [Unknown]
  - Weight increased [Unknown]
  - Anaemia [Unknown]
  - Increased appetite [Unknown]
  - Arthralgia [Recovered/Resolved]
  - Neck pain [Recovered/Resolved]
  - Arthropathy [Unknown]
  - Joint injury [Recovering/Resolving]
  - Off label use [Unknown]
  - Fatigue [Unknown]
  - Herpes virus infection [Recovered/Resolved]
  - Haemoglobin decreased [Recovered/Resolved]
  - Malaise [Unknown]

NARRATIVE: CASE EVENT DATE: 202001
